FAERS Safety Report 8772027 (Version 2)
Quarter: 2012Q4

REPORT INFORMATION
  Report Type: 
  Country: VE (occurrence: VE)
  Receive Date: 20120906
  Receipt Date: 20120919
  Transmission Date: 20130627
  Serious: Yes (Hospitalization)
  Sender: FDA-Public Use
  Company Number: VE-BAXTER-2012BAX016016

PATIENT
  Age: 87 Year
  Sex: Female

DRUGS (2)
  1. DIANEAL W/ DEXTROSE 1.5% [Suspect]
     Indication: RENAL FAILURE CHRONIC
     Route: 033
  2. DIANEAL W/ DEXTROSE 1.5% [Suspect]
     Indication: RENAL FAILURE CHRONIC
     Route: 033

REACTIONS (2)
  - Pyrexia [Recovered/Resolved]
  - Peritonitis [Recovered/Resolved]
